FAERS Safety Report 4830069-1 (Version None)
Quarter: 2005Q4

REPORT INFORMATION
  Report Type: 
  Country: None (occurrence: None)
  Receive Date: 20051115
  Receipt Date: 20051115
  Transmission Date: 20060501
  Serious: Yes (Life-Threatening)
  Sender: FDA-Public Use
  Company Number: None

PATIENT
  Age: 37 Year
  Sex: Male

DRUGS (14)
  1. ABILIFY [Suspect]
     Indication: MOOD ALTERED
     Dosage: 15 MG PO DAILY( SEE IMAGE)
     Route: 048
     Dates: start: 20050929, end: 20051004
  2. ABILIFY [Suspect]
     Indication: SUICIDAL IDEATION
     Dosage: 15 MG PO DAILY( SEE IMAGE)
     Route: 048
     Dates: start: 20050929, end: 20051004
  3. ABILIFY [Suspect]
     Indication: MOOD ALTERED
     Dosage: 15 MG PO DAILY( SEE IMAGE)
     Route: 048
     Dates: start: 20051006, end: 20051008
  4. ABILIFY [Suspect]
     Indication: SUICIDAL IDEATION
     Dosage: 15 MG PO DAILY( SEE IMAGE)
     Route: 048
     Dates: start: 20051006, end: 20051008
  5. ABILIFY [Suspect]
     Indication: MOOD ALTERED
     Dosage: 15 MG PO DAILY( SEE IMAGE)
     Route: 048
     Dates: start: 20051008
  6. ABILIFY [Suspect]
     Indication: SUICIDAL IDEATION
     Dosage: 15 MG PO DAILY( SEE IMAGE)
     Route: 048
     Dates: start: 20051008
  7. ABILIFY [Suspect]
     Indication: MOOD ALTERED
     Dosage: 15 MG PO DAILY( SEE IMAGE)
     Route: 048
     Dates: start: 20051010
  8. ABILIFY [Suspect]
     Indication: SUICIDAL IDEATION
     Dosage: 15 MG PO DAILY( SEE IMAGE)
     Route: 048
     Dates: start: 20051010
  9. VALPROIC ACID [Concomitant]
  10. ADVAIR DISKUS 100/50 [Concomitant]
  11. DIAMOX [Concomitant]
  12. ATIVAN [Concomitant]
  13. TOPAMAX [Concomitant]
  14. M.V.I. [Concomitant]

REACTIONS (6)
  - DYSKINESIA [None]
  - GRAND MAL CONVULSION [None]
  - LOSS OF CONSCIOUSNESS [None]
  - SKIN DISCOLOURATION [None]
  - TREMOR [None]
  - URINARY INCONTINENCE [None]
